FAERS Safety Report 6576583-2 (Version None)
Quarter: 2010Q1

REPORT INFORMATION
  Report Type: 
  Country: None (occurrence: None)
  Receive Date: 20100210
  Receipt Date: 20100128
  Transmission Date: 20100710
  Serious: Yes (Other)
  Sender: FDA-Public Use
  Company Number: PHHY2010CR02580

PATIENT
  Age: 50 Year
  Sex: Male

DRUGS (12)
  1. ACLASTA [Suspect]
     Indication: OSTEOPOROSIS
     Dosage: 5 MG ANNUALLY
     Dates: start: 20081226
  2. ACLASTA [Suspect]
     Dosage: 5 MG ANNUALLY
     Dates: start: 20100107
  3. COREG [Concomitant]
  4. VITAMIN E [Concomitant]
  5. FOLIC ACID [Concomitant]
  6. MILCLISTE [Concomitant]
  7. RASILEZ (ALISKIREN FUMARATE) [Concomitant]
     Dosage: UNK
  8. CONCOR [Concomitant]
  9. ZESTRIL [Concomitant]
  10. ACTOS [Concomitant]
  11. LANTUS [Concomitant]
  12. JANUVIA [Concomitant]

REACTIONS (13)
  - ARTHRALGIA [None]
  - BRONCHOSPASM [None]
  - CHILLS [None]
  - CYTOKINE RELEASE SYNDROME [None]
  - DEPRESSED MOOD [None]
  - DIARRHOEA [None]
  - DIPLOPIA [None]
  - EYE PAIN [None]
  - HEADACHE [None]
  - MALAISE [None]
  - MYALGIA [None]
  - PYREXIA [None]
  - RHINITIS [None]
